FAERS Safety Report 5066348-5 (Version None)
Quarter: 2006Q3

REPORT INFORMATION
  Report Type: 
  Country: None (occurrence: None)
  Receive Date: 20060801
  Receipt Date: 20060721
  Transmission Date: 20061208
  Serious: Yes (Hospitalization)
  Sender: FDA-Public Use
  Company Number: US-AMGEN-US187453

PATIENT
  Sex: Female

DRUGS (1)
  1. ENBREL [Suspect]
     Indication: RHEUMATOID ARTHRITIS
     Route: 058
     Dates: start: 19980101, end: 20060711

REACTIONS (5)
  - DEEP VEIN THROMBOSIS [None]
  - OSTEOARTHRITIS [None]
  - POST PROCEDURAL COMPLICATION [None]
  - SEPTIC SHOCK [None]
  - SPINAL FUSION SURGERY [None]
